FAERS Safety Report 12956573 (Version 3)
Quarter: 2016Q4

REPORT INFORMATION
  Report Type: Spontaneous
  Country: FR (occurrence: FR)
  Receive Date: 20161118
  Receipt Date: 20161229
  Transmission Date: 20170207
  Serious: Yes (Other)
  Sender: FDA-Public Use
  Company Number: FR-009507513-1611FRA005069

PATIENT
  Age: 58 Year
  Sex: Female

DRUGS (16)
  1. STROMECTOL [Suspect]
     Active Substance: IVERMECTIN
     Indication: PRODUCT USED FOR UNKNOWN INDICATION
     Dosage: 15 MG, ONCE
     Route: 048
     Dates: start: 20161016, end: 20161016
  2. BACTRIM [Suspect]
     Active Substance: SULFAMETHOXAZOLE\TRIMETHOPRIM
     Indication: OPPORTUNISTIC INFECTION PROPHYLAXIS
     Dosage: 1 DF, QD
     Route: 048
     Dates: start: 20161014, end: 20161020
  3. LASILIX [Suspect]
     Active Substance: FUROSEMIDE
     Indication: PRODUCT USED FOR UNKNOWN INDICATION
     Dosage: UNK
     Route: 042
     Dates: start: 20161017, end: 20161020
  4. ROVAMYCINE [Suspect]
     Active Substance: SPIRAMYCIN
     Indication: LUNG DISORDER
     Dosage: 9 MILLION IU, QD
     Route: 042
     Dates: start: 20161014, end: 20161020
  5. NOREPINEPHRINE [Suspect]
     Active Substance: NOREPINEPHRINE\NOREPINEPHRINE BITARTRATE
     Indication: HYPOTENSION
     Dosage: UNK
     Route: 042
     Dates: start: 20161013, end: 20161019
  6. ENDOXAN [Concomitant]
     Active Substance: CYCLOPHOSPHAMIDE
     Dosage: 2 ND CYCLE
     Dates: start: 20161021
  7. LEVOFLOXACIN. [Concomitant]
     Active Substance: LEVOFLOXACIN
     Indication: LUNG DISORDER
     Dosage: 500 MG, QD
     Route: 048
     Dates: start: 20161007, end: 20161014
  8. NIMBEX [Concomitant]
     Active Substance: CISATRACURIUM BESYLATE
     Indication: NEUROMUSCULAR BLOCKING THERAPY
     Dosage: UNK
     Route: 042
     Dates: start: 20161012, end: 20161016
  9. CEFOTAXIME SODIUM [Suspect]
     Active Substance: CEFOTAXIME SODIUM
     Indication: LUNG DISORDER
     Dosage: 6 G, QD
     Route: 042
     Dates: start: 20161014, end: 20161020
  10. MIDAZOLAM [Suspect]
     Active Substance: MIDAZOLAM\MIDAZOLAM HYDROCHLORIDE
     Indication: SEDATION
     Dosage: UNK
     Route: 042
     Dates: start: 20161012, end: 20161018
  11. SOLU-MEDROL [Suspect]
     Active Substance: METHYLPREDNISOLONE SODIUM SUCCINATE
     Indication: ANTISYNTHETASE SYNDROME
     Dosage: 70 MG, QD
     Route: 042
     Dates: start: 20161017, end: 20161020
  12. ENDOXAN [Concomitant]
     Active Substance: CYCLOPHOSPHAMIDE
     Indication: ANTISYNTHETASE SYNDROME
     Dosage: 800 MG, UNK
     Route: 042
     Dates: start: 20161014
  13. ENDOXAN [Concomitant]
     Active Substance: CYCLOPHOSPHAMIDE
     Dosage: 4TH CYCLE
     Dates: start: 20161208
  14. SOLU-MEDROL [Suspect]
     Active Substance: METHYLPREDNISOLONE SODIUM SUCCINATE
     Dosage: 40 MG, UNK
     Route: 042
     Dates: start: 20161012, end: 20161012
  15. FENTANYL. [Suspect]
     Active Substance: FENTANYL
     Indication: SEDATION
     Dosage: UNK
     Route: 042
     Dates: start: 20161012, end: 20161018
  16. SOLU-MEDROL [Suspect]
     Active Substance: METHYLPREDNISOLONE SODIUM SUCCINATE
     Dosage: 1 G, QD
     Route: 042
     Dates: start: 20161014, end: 20161016

REACTIONS (1)
  - Mixed liver injury [Recovering/Resolving]

NARRATIVE: CASE EVENT DATE: 20161018
